FAERS Safety Report 16221387 (Version 1)
Quarter: 2019Q2

REPORT INFORMATION
  Report Type: Spontaneous
  Country: ES (occurrence: ES)
  Receive Date: 20190422
  Receipt Date: 20190422
  Transmission Date: 20190711
  Serious: Yes (Hospitalization)
  Sender: FDA-Public Use
  Company Number: ES-TEVA-2019-ES-1040904

PATIENT
  Age: 74 Year
  Sex: Male

DRUGS (1)
  1. CARVEDILOL (2431A) [Suspect]
     Active Substance: CARVEDILOL
     Dates: start: 20060906

REACTIONS (2)
  - Presyncope [Recovered/Resolved]
  - Atrial fibrillation [Recovered/Resolved]

NARRATIVE: CASE EVENT DATE: 20181110
